FAERS Safety Report 19013870 (Version 1)
Quarter: 2021Q1

REPORT INFORMATION
  Report Type: Spontaneous
  Country: US (occurrence: US)
  Receive Date: 20210315
  Receipt Date: 20210315
  Transmission Date: 20210420
  Serious: No
  Sender: FDA-Public Use
  Company Number: US-ORGANON-2102USA006283

PATIENT
  Age: 84 Year
  Sex: Female

DRUGS (3)
  1. CALCIUM [Suspect]
     Active Substance: CALCIUM
     Indication: OSTEOPENIA
     Dosage: UNK
  2. FOSAMAX [Suspect]
     Active Substance: ALENDRONATE SODIUM
     Indication: OSTEOPENIA
     Dosage: UNK
  3. VITAMIN D NOS [Suspect]
     Active Substance: VITAMIN D NOS
     Indication: OSTEOPENIA
     Dosage: UNK

REACTIONS (1)
  - Dyspepsia [Recovering/Resolving]
